FAERS Safety Report 12804449 (Version 1)
Quarter: 2016Q4

REPORT INFORMATION
  Report Type: Spontaneous
  Country: US (occurrence: US)
  Receive Date: 20161003
  Receipt Date: 20161003
  Transmission Date: 20170207
  Serious: No
  Sender: FDA-Public Use
  Company Number: US-BAYER-2016-191122

PATIENT
  Age: 62 Year
  Sex: Female
  Weight: 81.63 kg

DRUGS (3)
  1. MIRALAX [Suspect]
     Active Substance: POLYETHYLENE GLYCOL 3350
     Dosage: UNK
     Route: 048
     Dates: start: 2012
  2. MIRAFIBER SUGAR FREE ORANGE POWDER [Concomitant]
     Active Substance: METHYLCELLULOSES
  3. DULCOLAX (DOCUSATE SODIUM) [Concomitant]
     Active Substance: DOCUSATE SODIUM

REACTIONS (2)
  - Off label use [Unknown]
  - Product use issue [Unknown]
